FAERS Safety Report 14378737 (Version 2)
Quarter: 2021Q3

REPORT INFORMATION
  Report Type: Spontaneous
  Country: US (occurrence: US)
  Receive Date: 20180112
  Receipt Date: 20210814
  Transmission Date: 20211014
  Serious: Yes (Other)
  Sender: FDA-Public Use
  Company Number: US-AUROBINDO-AUR-APL-2018-001687

PATIENT
  Age: 66 Year
  Sex: Male

DRUGS (3)
  1. EPINEPHRINE. [Suspect]
     Active Substance: EPINEPHRINE
     Dosage: 1 MILLIGRAM
     Route: 065
  2. LIDOCAINE INJECTION [Suspect]
     Active Substance: LIDOCAINE
     Indication: PRODUCT USED FOR UNKNOWN INDICATION
     Dosage: 3CC^S OF 1.5% LIDOCAINE WITH 1:200K OF EPINEPHRINE ; IN TOTAL
     Route: 008
  3. EPINEPHRINE. [Suspect]
     Active Substance: EPINEPHRINE
     Indication: PRODUCT USED FOR UNKNOWN INDICATION
     Dosage: 3CC^S OF 1.5% LIDOCAINE WITH 1:200K OF EPINEPHRINE ; IN TOTAL
     Route: 008

REACTIONS (6)
  - Aphonia [Recovered/Resolved]
  - Muscular weakness [Recovered/Resolved]
  - Unresponsive to stimuli [Recovered/Resolved]
  - Oxygen saturation decreased [Recovered/Resolved]
  - Dyspnoea [Recovered/Resolved]
  - Anaesthetic complication [Recovered/Resolved]
